FAERS Safety Report 8188967-X (Version None)
Quarter: 2012Q1

REPORT INFORMATION
  Report Type: 
  Country: None (occurrence: None)
  Receive Date: 20120306
  Receipt Date: 20120227
  Transmission Date: 20120608
  Serious: Yes (Hospitalization, Other)
  Sender: FDA-Public Use
  Company Number: PHEH2008US04276

PATIENT
  Sex: Female
  Weight: 68.481 kg

DRUGS (71)
  1. WARFARIN SODIUM [Concomitant]
     Dosage: 5 MG, DAILY
  2. PEPCID [Concomitant]
     Dosage: 40 MG, DAILY
  3. METRONIDAZOLE [Concomitant]
  4. LIPITOR [Concomitant]
     Dosage: 40 MG, QD
  5. PREVACID [Concomitant]
     Dosage: 30 MG, QD
  6. LANSOPRAZOLE [Concomitant]
  7. JEVITY [Concomitant]
  8. MULTIPLE VITAMIN [Concomitant]
  9. TENORMIN [Concomitant]
  10. DURATUSS [Concomitant]
  11. IRON [Concomitant]
  12. CRESTOR [Concomitant]
  13. COUMADIN [Concomitant]
     Dosage: 3.75 MG /  DAILY
     Dates: start: 20060126
  14. LOVENOX [Concomitant]
  15. PANTOPRAZOLE [Concomitant]
  16. PERIDEX [Concomitant]
     Dates: start: 20060303
  17. COZAAR [Concomitant]
     Dosage: 50 MG, DAILY
  18. VITAMIN D [Concomitant]
  19. ATENOLOL [Concomitant]
  20. PAXIL [Concomitant]
     Dosage: 20 MG, QD
  21. CHLOROPHYLLIN SODIUM COPPER COMPLEX [Concomitant]
  22. AREDIA [Suspect]
     Indication: OSTEOPOROSIS
     Dosage: 90 MG, QMO
  23. BUSPAR [Concomitant]
     Dosage: 15 MG, BID
  24. VIOXX [Concomitant]
  25. MULTI-VITAMINS [Concomitant]
  26. BACLOFEN [Concomitant]
  27. NOVOLOG [Concomitant]
  28. FLAXSEED OIL [Concomitant]
  29. ANTICOAGULANTS [Concomitant]
     Dosage: UNK
  30. ZETIA [Concomitant]
  31. PENICILLIN [Concomitant]
  32. AUGMENTIN '125' [Concomitant]
     Dates: start: 20050401, end: 20050701
  33. GLUCOSAMINE [Concomitant]
  34. ZOLOFT [Concomitant]
     Dosage: 50 MG, QD
     Route: 048
  35. LIPASE [Concomitant]
  36. MORPHINE [Concomitant]
  37. PANCREASE [Concomitant]
  38. MYCOSTATIN [Concomitant]
  39. CLARITIN [Concomitant]
     Dosage: 10 MG, QD
  40. COLACE [Concomitant]
     Dosage: 100 MG, BID
  41. CALCIUM LACTATE [Concomitant]
  42. ZOMETA [Suspect]
  43. CLINDAMYCIN [Concomitant]
     Dosage: 300 MG, QID
     Route: 048
     Dates: start: 20060303
  44. COUMADIN [Concomitant]
     Dosage: 5 MG, QD
     Dates: end: 20060126
  45. HYDRALAZINE HCL [Concomitant]
     Dosage: 10 MG, QD
  46. REGLAN [Concomitant]
     Dosage: 5 MG, TID
  47. LOSARTAN POTASSIUM [Concomitant]
  48. ELAVIL [Concomitant]
  49. DARVOCET-N 50 [Concomitant]
  50. ZANTAC [Concomitant]
  51. PROZAC [Concomitant]
  52. PITUITROPHIN PMG [Concomitant]
  53. BUSPIRONE HCL [Concomitant]
  54. CIPROFLOXACIN [Concomitant]
  55. GLIPIZIDE [Concomitant]
     Dosage: 5 MG, QD
  56. HERBALS NOS W/MINERALS NOS/VITAMINS NOS [Concomitant]
  57. INSULIN INJECTION [Concomitant]
     Dosage: 8 U, BID
     Route: 058
  58. PROMETHAZINE [Concomitant]
  59. ACETAMINOPHEN [Concomitant]
  60. NEURONTIN [Concomitant]
  61. SALINEX NASAL DROPS [Concomitant]
  62. NYSTATIN [Concomitant]
  63. FOLIC ACID [Concomitant]
     Dosage: 1 MG, DAILY
  64. NASAL SPRAY [Concomitant]
  65. GLUCOPHAGE [Concomitant]
     Dosage: 500 MG, BID
  66. FLAGYL [Concomitant]
     Dosage: 500 MG, QD
     Dates: start: 20050101
  67. MYSOLINE [Concomitant]
     Dosage: 50 MG, BID
     Route: 048
  68. OXYCODONE HCL [Concomitant]
  69. ATIVAN [Concomitant]
  70. FERROUS SULFATE TAB [Concomitant]
  71. ASCORBIC ACID [Concomitant]

REACTIONS (100)
  - SWELLING FACE [None]
  - IRON DEFICIENCY ANAEMIA [None]
  - URINARY TRACT INFECTION [None]
  - IMPAIRED GASTRIC EMPTYING [None]
  - HAEMATOCHEZIA [None]
  - GASTROINTESTINAL HAEMORRHAGE [None]
  - ORAL CAVITY FISTULA [None]
  - EAR DISCOMFORT [None]
  - DRY EYE [None]
  - MUSCULOSKELETAL PAIN [None]
  - BRUXISM [None]
  - PYREXIA [None]
  - POST PROCEDURAL FISTULA [None]
  - CONVULSION [None]
  - GASTROOESOPHAGEAL REFLUX DISEASE [None]
  - LAGOPHTHALMOS [None]
  - COUGH [None]
  - ANHEDONIA [None]
  - PAIN IN JAW [None]
  - RESPIRATORY FAILURE [None]
  - ATAXIA [None]
  - HAEMATEMESIS [None]
  - ANAEMIA [None]
  - OSTEOPENIA [None]
  - SKIN ULCER [None]
  - EAR HAEMORRHAGE [None]
  - EXCORIATION [None]
  - OSTEONECROSIS OF JAW [None]
  - ERYTHEMA [None]
  - PNEUMONIA ASPIRATION [None]
  - EMBOLISM [None]
  - TYPE 2 DIABETES MELLITUS [None]
  - VULVOVAGINAL CANDIDIASIS [None]
  - FIBROMYALGIA [None]
  - VIITH NERVE PARALYSIS [None]
  - ENCEPHALOMALACIA [None]
  - VAGINAL HAEMORRHAGE [None]
  - MYALGIA [None]
  - DYSPHAGIA [None]
  - DISABILITY [None]
  - GINGIVITIS [None]
  - ASPARTATE AMINOTRANSFERASE INCREASED [None]
  - DECUBITUS ULCER [None]
  - GAIT DISTURBANCE [None]
  - BONE CALLUS EXCESSIVE [None]
  - MYOPIA [None]
  - EXERCISE TOLERANCE DECREASED [None]
  - ONYCHOMYCOSIS [None]
  - PRURITUS [None]
  - MUSCLE TWITCHING [None]
  - RESPIRATORY DISTRESS [None]
  - OSTEITIS [None]
  - FRACTURE NONUNION [None]
  - CARDIOVASCULAR DISORDER [None]
  - CARPAL TUNNEL SYNDROME [None]
  - CATARACT NUCLEAR [None]
  - EXTRASKELETAL OSSIFICATION [None]
  - MUSCLE SPASMS [None]
  - ASTHENIA [None]
  - WEIGHT DECREASED [None]
  - PROTHROMBIN TIME PROLONGED [None]
  - LACRIMATION INCREASED [None]
  - ALANINE AMINOTRANSFERASE INCREASED [None]
  - OTITIS MEDIA [None]
  - WALKING AID USER [None]
  - PAIN IN EXTREMITY [None]
  - OSTEOMYELITIS [None]
  - PAIN [None]
  - APNOEA [None]
  - SINUS TACHYCARDIA [None]
  - DEPRESSION [None]
  - OSTEOARTHRITIS [None]
  - OSTEOPOROSIS [None]
  - HIP DEFORMITY [None]
  - SPINAL DISORDER [None]
  - FATIGUE [None]
  - CRANIAL NERVE DISORDER [None]
  - MALAISE [None]
  - FALL [None]
  - RHINORRHOEA [None]
  - SPEECH DISORDER [None]
  - FLUID INTAKE REDUCED [None]
  - INJURY [None]
  - JAW FRACTURE [None]
  - DENTAL CARIES [None]
  - PERIODONTAL DISEASE [None]
  - PERIODONTITIS [None]
  - DYSKINESIA [None]
  - INCREASED BRONCHIAL SECRETION [None]
  - PATHOLOGICAL FRACTURE [None]
  - QUADRIPLEGIA [None]
  - GOITRE [None]
  - ANXIETY [None]
  - VISUAL ACUITY REDUCED [None]
  - BLOOD GLUCOSE DECREASED [None]
  - BALANCE DISORDER [None]
  - VISUAL IMPAIRMENT [None]
  - DECREASED APPETITE [None]
  - MUSCULOSKELETAL STIFFNESS [None]
  - HYPOAESTHESIA [None]
